FAERS Safety Report 4422536-X (Version None)
Quarter: 2004Q3

REPORT INFORMATION
  Report Type: 
  Country: None (occurrence: None)
  Receive Date: 20040810
  Receipt Date: 20040727
  Transmission Date: 20050211
  Serious: Yes (Congenital Anomaly)
  Sender: FDA-Public Use
  Company Number: PHBS2004BE10454

PATIENT
  Age: 1 Day
  Sex: Male

DRUGS (1)
  1. ERGOTAMINE TARTRATE [Suspect]
     Route: 064

REACTIONS (8)
  - COARCTATION OF THE AORTA [None]
  - DRUG EXPOSURE DURING PREGNANCY [None]
  - HYPOTONIA NEONATAL [None]
  - MOEBIUS II SYNDROME [None]
  - NEONATAL DISORDER [None]
  - TALIPES [None]
  - VIITH NERVE PARALYSIS [None]
  - VITH NERVE PARALYSIS [None]
